FAERS Safety Report 8604460-1 (Version None)
Quarter: 2012Q3

REPORT INFORMATION
  Report Type: 
  Country: None (occurrence: None)
  Receive Date: 20120820
  Receipt Date: 20120810
  Transmission Date: 20120928
  Serious: Yes (Other)
  Sender: FDA-Public Use
  Company Number: US-BAYER-201025587NA

PATIENT
  Age: 67 Year
  Sex: Female

DRUGS (7)
  1. NEXAVAR [Suspect]
     Indication: THYROID CANCER
     Dosage: 200 MG, BID
     Route: 048
     Dates: start: 20090709
  2. NEXAVAR [Suspect]
     Dosage: 200 MG, QD
     Route: 048
  3. NEXAVAR [Suspect]
     Dosage: 200 MG, QD
     Route: 048
  4. NEXAVAR [Suspect]
     Dosage: 200 MG, QD
     Route: 048
  5. NEXAVAR [Suspect]
     Dosage: 200 MG, QD
     Route: 048
  6. NEXAVAR [Suspect]
     Dosage: 200 MG, QD
     Route: 048
  7. NEXAVAR [Suspect]

REACTIONS (19)
  - CONSTIPATION [None]
  - ARTHRALGIA [None]
  - PHARYNGEAL OEDEMA [None]
  - PAIN IN EXTREMITY [None]
  - ALOPECIA [None]
  - ANTIBIOTIC THERAPY [None]
  - EAR INFECTION [None]
  - ADVERSE DRUG REACTION [None]
  - JOINT SWELLING [None]
  - PALMAR-PLANTAR ERYTHRODYSAESTHESIA SYNDROME [None]
  - DRY MOUTH [None]
  - LIP DRY [None]
  - DIARRHOEA [None]
  - HAIR DISORDER [None]
  - HAIR TEXTURE ABNORMAL [None]
  - LIMB INJURY [None]
  - BLISTER [None]
  - OROPHARYNGEAL PAIN [None]
  - OEDEMA PERIPHERAL [None]
